FAERS Safety Report 6043278-3 (Version None)
Quarter: 2009Q1

REPORT INFORMATION
  Report Type: 
  Country: None (occurrence: None)
  Receive Date: 20090119
  Receipt Date: 20090109
  Transmission Date: 20090719
  Serious: Yes (Hospitalization)
  Sender: FDA-Public Use
  Company Number: SG-BAXTER-2009BH000078

PATIENT
  Age: 53 Year
  Sex: Male
  Weight: 77 kg

DRUGS (25)
  1. NUTRINEAL [Suspect]
     Indication: PERITONEAL DIALYSIS
     Route: 033
     Dates: start: 20081212
  2. EXTRANEAL [Suspect]
     Indication: PERITONEAL DIALYSIS
     Route: 033
     Dates: start: 20081212
  3. PHYSIOSOL IN PLASTIC CONTAINER [Suspect]
     Indication: PERITONEAL DIALYSIS
     Route: 033
     Dates: start: 20081212
  4. CAPTOPRIL [Concomitant]
     Indication: HYPERTENSION
     Route: 048
     Dates: start: 20080705
  5. CALCIUM ACETATE [Concomitant]
     Indication: HYPERPHOSPHATAEMIA
     Route: 048
     Dates: start: 20080703
  6. ASCORBIC ACID [Concomitant]
     Indication: VITAMIN SUPPLEMENTATION
     Route: 048
  7. BIOTIN [Concomitant]
     Indication: VITAMIN SUPPLEMENTATION
     Route: 048
  8. CALCIUM PANTOTHENATE [Concomitant]
     Indication: VITAMIN SUPPLEMENTATION
     Route: 048
  9. CYANOCOBALAMIN [Concomitant]
     Indication: VITAMIN SUPPLEMENTATION
     Route: 048
  10. FOLIC ACID [Concomitant]
     Indication: VITAMIN SUPPLEMENTATION
     Route: 048
  11. CALCITRIOL [Concomitant]
     Indication: HYPERPARATHYROIDISM
     Route: 048
     Dates: start: 20081001
  12. EPOGEN [Concomitant]
     Indication: ANAEMIA
     Route: 058
  13. ATENOLOL [Concomitant]
     Indication: HYPERTENSION
     Route: 048
  14. CHLORTHALIDONE [Concomitant]
     Indication: HYPERTENSION
     Route: 048
  15. AMLODIPINE [Concomitant]
     Indication: HYPERTENSION
     Route: 048
  16. ASPIRIN [Concomitant]
     Indication: ANTICOAGULANT THERAPY
     Route: 048
  17. CANDESARTAN CILEXETIL [Concomitant]
     Indication: HYPERTENSION
     Route: 048
  18. TADALAFIL [Concomitant]
     Indication: ERECTILE DYSFUNCTION
     Route: 048
     Dates: start: 20080819
  19. CEFADROXIL [Concomitant]
     Indication: INFUSION SITE INFECTION
     Route: 048
     Dates: start: 20081210
  20. ACETAMINOPHEN [Concomitant]
     Indication: UPPER RESPIRATORY TRACT INFECTION
     Route: 048
     Dates: start: 20081222
  21. CHLORPHENIRAMINE MALEATE [Concomitant]
     Indication: UPPER RESPIRATORY TRACT INFECTION
     Route: 048
     Dates: start: 20081222
  22. AMMONIUM CHLORIDE [Concomitant]
     Indication: UPPER RESPIRATORY TRACT INFECTION
     Route: 048
     Dates: start: 20081222
  23. CHLORPHENIRAMINE MALEATE [Concomitant]
     Route: 048
     Dates: start: 20081222
  24. DEXTROETHORPHAN HB [Concomitant]
     Indication: UPPER RESPIRATORY TRACT INFECTION
     Route: 048
     Dates: start: 20081222
  25. METHYLEPHEDRINE HCL [Concomitant]
     Indication: UPPER RESPIRATORY TRACT INFECTION
     Route: 048
     Dates: start: 20081222

REACTIONS (1)
  - DEHYDRATION [None]
